FAERS Safety Report 4978903-9 (Version None)
Quarter: 2006Q2

REPORT INFORMATION
  Report Type: 
  Country: None (occurrence: None)
  Receive Date: 20060421
  Receipt Date: 20060411
  Transmission Date: 20061013
  Serious: Yes (Other)
  Sender: FDA-Public Use
  Company Number: GB-JNJFOC-20060402916

PATIENT
  Sex: Female

DRUGS (2)
  1. REMICADE [Suspect]
     Indication: DRUG USE FOR UNKNOWN INDICATION
     Dosage: GIVEN END OF FEBRUARY 2006.
     Route: 042
  2. AZATHIOPRINE [Concomitant]

REACTIONS (2)
  - DEPRESSION [None]
  - PSYCHOTIC DISORDER [None]
